FAERS Safety Report 23719582 (Version 1)
Quarter: 2024Q2

REPORT INFORMATION
  Report Type: Report from Study
  Country: EG (occurrence: EG)
  Receive Date: 20240408
  Receipt Date: 20240408
  Transmission Date: 20240716
  Serious: Yes (Other)
  Sender: FDA-Public Use
  Company Number: EG-002147023-NVSC2021EG061570

PATIENT
  Age: 28 Year
  Sex: Female

DRUGS (10)
  1. GLIVEC [Suspect]
     Active Substance: IMATINIB MESYLATE
     Indication: Chronic myeloid leukaemia
     Dosage: 400 MG, QD  (90 TABS)
     Route: 065
     Dates: start: 20200202, end: 20210907
  2. GLIVEC [Suspect]
     Active Substance: IMATINIB MESYLATE
     Dosage: 400 MG, QD, (1 TAB)
     Route: 065
     Dates: start: 20211205
  3. GLIVEC [Suspect]
     Active Substance: IMATINIB MESYLATE
     Indication: Chronic myeloid leukaemia
     Dosage: 100 MG (STOPPED 8 MONTH AGO)
     Route: 048
     Dates: start: 20200202, end: 202106
  4. PANADOL [Concomitant]
     Active Substance: ACETAMINOPHEN
     Indication: Fatigue
     Dosage: 50 MG, (UNIT PER DAY, MONTH 1-1 OR 2 TABS WHEN NEEDED)
     Route: 048
     Dates: start: 202201
  5. PANADOL [Concomitant]
     Active Substance: ACETAMINOPHEN
     Indication: Swelling face
  6. PANADOL [Concomitant]
     Active Substance: ACETAMINOPHEN
     Indication: Bone pain
  7. KETOROLAC TROMETHAMINE [Concomitant]
     Active Substance: KETOROLAC TROMETHAMINE
     Indication: Analgesic therapy
     Dosage: UNK, (AMPOULES FOR INJECTION/ WEEK)
     Route: 065
     Dates: start: 20200202
  8. CALCIUM [Concomitant]
     Active Substance: CALCIUM
     Indication: Fatigue
     Dosage: UNK, (1 AMPOULE FOR INJECTION / WEEK)
     Route: 065
     Dates: start: 202002, end: 202005
  9. CALCIUM [Concomitant]
     Active Substance: CALCIUM
     Indication: Swelling face
     Dosage: UNK, QD, (WHEN NEEDED AND 1 OR 2 TABS WHEN NEEDED)
     Route: 065
     Dates: start: 202201
  10. CALCIUM [Concomitant]
     Active Substance: CALCIUM
     Indication: Bone pain

REACTIONS (8)
  - Cytogenetic analysis abnormal [Not Recovered/Not Resolved]
  - Drug resistance [Unknown]
  - Therapy non-responder [Not Recovered/Not Resolved]
  - Fatigue [Not Recovered/Not Resolved]
  - Bone pain [Not Recovered/Not Resolved]
  - Hypocalcaemia [Recovering/Resolving]
  - Swelling [Not Recovered/Not Resolved]
  - Product dose omission issue [Not Recovered/Not Resolved]

NARRATIVE: CASE EVENT DATE: 20200201
